FAERS Safety Report 19934540 (Version 2)
Quarter: 2021Q4

REPORT INFORMATION
  Report Type: Report from Study
  Country: US (occurrence: US)
  Receive Date: 20211008
  Receipt Date: 20211230
  Transmission Date: 20220303
  Serious: Yes (Hospitalization)
  Sender: FDA-Public Use
  Company Number: US-UCBSA-2021046257

PATIENT
  Age: 74 Year
  Sex: Female

DRUGS (1)
  1. ROTIGOTINE [Suspect]
     Active Substance: ROTIGOTINE
     Indication: Restless legs syndrome
     Dosage: 1 MILLIGRAM, ONCE DAILY (QD)
     Dates: start: 202105

REACTIONS (5)
  - Fall [Recovered/Resolved]
  - Diarrhoea [Not Recovered/Not Resolved]
  - Dehydration [Not Recovered/Not Resolved]
  - Therapy interrupted [Unknown]
  - Product availability issue [Unknown]

NARRATIVE: CASE EVENT DATE: 20210701
